FAERS Safety Report 5915547-6 (Version None)
Quarter: 2008Q4

REPORT INFORMATION
  Report Type: 
  Country: None (occurrence: None)
  Receive Date: 20081010
  Receipt Date: 20080819
  Transmission Date: 20090506
  Serious: No
  Sender: FDA-Public Use
  Company Number: A0739773A

PATIENT
  Age: 40 Year
  Sex: Female
  Weight: 57.7 kg

DRUGS (1)
  1. TYKERB [Suspect]
     Indication: DRUG USE FOR UNKNOWN INDICATION
     Route: 048
     Dates: start: 20080701

REACTIONS (3)
  - DIARRHOEA [None]
  - PRURITUS [None]
  - RASH ERYTHEMATOUS [None]
